FAERS Safety Report 13091807 (Version 1)
Quarter: 2017Q1

REPORT INFORMATION
  Report Type: Spontaneous
  Country: US (occurrence: US)
  Receive Date: 20170106
  Receipt Date: 20170106
  Transmission Date: 20170428
  Serious: Yes (Hospitalization, Other)
  Sender: FDA-Public Use
  Company Number: US-ZYDUS-013055

PATIENT
  Age: 66 Year
  Sex: Male

DRUGS (1)
  1. WARFARIN [Suspect]
     Active Substance: WARFARIN
     Indication: ATRIAL FIBRILLATION
     Route: 065

REACTIONS (9)
  - Ventricular fibrillation [Unknown]
  - Haematoma [Unknown]
  - Loss of consciousness [Unknown]
  - Hypovolaemic shock [Unknown]
  - Asthenia [Unknown]
  - Ecchymosis [Unknown]
  - Lethargy [Unknown]
  - Hypotension [Unknown]
  - Haemorrhage [Unknown]
